FAERS Safety Report 5124488-6 (Version None)
Quarter: 2006Q4

REPORT INFORMATION
  Report Type: 
  Country: None (occurrence: None)
  Receive Date: 20060821
  Receipt Date: 20060501
  Transmission Date: 20070319
  Serious: No
  Sender: FDA-Public Use
  Company Number: TPA2006A00436

PATIENT
  Age: 55 Year
  Sex: Male
  Weight: 68.0396 kg

DRUGS (3)
  1. ROZEREM [Suspect]
     Indication: INSOMNIA
     Dosage: 8 MG, PER ORAL
     Route: 048
     Dates: start: 20060208, end: 20060208
  2. AMBIEN [Suspect]
  3. LAMICTAL [Suspect]
     Dosage: 150 MG,
     Dates: start: 20040101

REACTIONS (3)
  - FEELING ABNORMAL [None]
  - HANGOVER [None]
  - HYPERSOMNIA [None]
